FAERS Safety Report 7249499-6 (Version None)
Quarter: 2011Q1

REPORT INFORMATION
  Report Type: 
  Country: None (occurrence: None)
  Receive Date: 20110119
  Receipt Date: 20110111
  Transmission Date: 20110831
  Serious: Yes (Life-Threatening, Hospitalization)
  Sender: FDA-Public Use
  Company Number: 111430

PATIENT
  Age: 6 Month
  Sex: Male

DRUGS (1)
  1. PROPRANOLOL HCL [Suspect]
     Indication: HEPATIC LESION
     Dosage: 2MG/KG/DAY IN THREE DIVIDED DOSES

REACTIONS (2)
  - HYPERPHAGIA [None]
  - HYPOGLYCAEMIC SEIZURE [None]
